FAERS Safety Report 4305060-4 (Version None)
Quarter: 2004Q1

REPORT INFORMATION
  Report Type: 
  Country: None (occurrence: None)
  Receive Date: 20040225
  Receipt Date: 20040225
  Transmission Date: 20041129
  Serious: Yes (Hospitalization)
  Sender: FDA-Public Use
  Company Number: None

PATIENT
  Age: 71 Year
  Sex: Male
  Weight: 98 kg

DRUGS (8)
  1. EPTIFIBITIDE 75 MG IV [Suspect]
     Indication: CATHETERISATION CARDIAC
     Dosage: 18 MG BOLUS THEN 16 ML/M X 8 HR POST -PROCEDURE
     Route: 040
     Dates: start: 20030523
  2. HEPARIN [Concomitant]
  3. ASPIRIN [Concomitant]
  4. ATORVASTATIN [Concomitant]
  5. CLOPIDOGREL BISULFATE [Concomitant]
  6. IRBESATAN [Concomitant]
  7. METOPROLOL [Concomitant]
  8. TEMAZEPAM [Concomitant]

REACTIONS (1)
  - PLATELET COUNT DECREASED [None]
